FAERS Safety Report 17680953 (Version 2)
Quarter: 2021Q1

REPORT INFORMATION
  Report Type: Spontaneous
  Country: GB (occurrence: GB)
  Receive Date: 20200417
  Receipt Date: 20210326
  Transmission Date: 20210419
  Serious: Yes (Other)
  Sender: FDA-Public Use
  Company Number: GB-MYLANLABS-2020M1038763

PATIENT
  Age: 52 Year
  Sex: Female

DRUGS (6)
  1. LAMICTAL [Suspect]
     Active Substance: LAMOTRIGINE
     Indication: EPILEPSY
     Dosage: TAKE 125MG RATHER THAN 100MG AT NIGH
  2. LAMICTAL [Suspect]
     Active Substance: LAMOTRIGINE
     Dosage: 200MG DAILY (100 MG MORN + NIGHT)
  3. SOFRADEX                           /00049501/ [Suspect]
     Active Substance: DEXAMETHASONE\FRAMYCETIN SULFATE\GRAMICIDIN
     Indication: EAR DISCOMFORT
     Dosage: UNK
  4. ZONEGRAN [Concomitant]
     Active Substance: ZONISAMIDE
     Indication: EPILEPSY
     Dosage: 500 MG, QD
  5. LAMICTAL [Suspect]
     Active Substance: LAMOTRIGINE
     Dosage: 200 MG, QD
  6. CLOBAZAM. [Concomitant]
     Active Substance: CLOBAZAM
     Indication: EPILEPSY
     Dosage: 20 MG, QD

REACTIONS (7)
  - Eyelid pain [Recovered/Resolved]
  - Eyelid disorder [Recovered/Resolved]
  - Eye irritation [Unknown]
  - Alopecia [Unknown]
  - Fatigue [Unknown]
  - Erythema of eyelid [Recovered/Resolved]
  - Seizure [Unknown]

NARRATIVE: CASE EVENT DATE: 20200219
